FAERS Safety Report 8417110-4 (Version None)
Quarter: 2012Q2

REPORT INFORMATION
  Report Type: 
  Country: None (occurrence: None)
  Receive Date: 20120606
  Receipt Date: 20120601
  Transmission Date: 20120825
  Serious: Yes (Other)
  Sender: FDA-Public Use
  Company Number: DE-ROCHE-1075581

PATIENT
  Sex: Female

DRUGS (2)
  1. LUCENTIS [Suspect]
     Indication: MACULAR DEGENERATION
     Dosage: STRENGTH: 10 MG/ML
     Route: 050
  2. LUCENTIS [Suspect]
     Route: 050
     Dates: start: 20111026

REACTIONS (6)
  - TACHYCARDIA [None]
  - MYALGIA [None]
  - RED BLOOD CELL SEDIMENTATION RATE INCREASED [None]
  - ASTHENIA [None]
  - PYREXIA [None]
  - COLLAGEN DISORDER [None]
